FAERS Safety Report 6488081-5 (Version None)
Quarter: 2009Q4

REPORT INFORMATION
  Report Type: 
  Country: None (occurrence: None)
  Receive Date: 20091210
  Receipt Date: 20091130
  Transmission Date: 20100525
  Serious: Yes (Other)
  Sender: FDA-Public Use
  Company Number: JP-PFIZER INC-2009294017

PATIENT

DRUGS (1)
  1. SELARA [Suspect]
     Dosage: UNK
     Route: 048

REACTIONS (4)
  - ABDOMINAL DISCOMFORT [None]
  - ALBUMIN URINE [None]
  - BLOOD GLUCOSE INCREASED [None]
  - DECREASED APPETITE [None]
